FAERS Safety Report 8299061 (Version 2)
Quarter: 2014Q1

REPORT INFORMATION
  Report Type: Spontaneous
  Country: US (occurrence: US)
  Receive Date: 20111219
  Receipt Date: 20140103
  Transmission Date: 20141002
  Serious: No
  Sender: FDA-Public Use
  Company Number: US-ASTRAZENECA-2011SE34564

PATIENT
  Age: 71 Year
  Sex: Female
  Weight: 60.8 kg

DRUGS (10)
  1. CRESTOR [Suspect]
     Indication: BLOOD CHOLESTEROL ABNORMAL
     Route: 048
     Dates: start: 2011, end: 2011
  2. OMEPRAZOLE [Suspect]
     Indication: GASTROOESOPHAGEAL REFLUX DISEASE
     Route: 048
     Dates: start: 2004
  3. LIPITOR [Concomitant]
  4. ZOCOR [Concomitant]
  5. NEURONTIN [Concomitant]
     Indication: POST-TRAUMATIC NECK SYNDROME
  6. NEURONTIN [Concomitant]
     Indication: HYPOAESTHESIA
  7. NEURONTIN [Concomitant]
     Indication: PARAESTHESIA
  8. LORAZEPAM [Concomitant]
     Indication: SLEEP DISORDER
  9. CALMAG WITH VITAMIN D [Concomitant]
     Indication: NUTRITIONAL SUPPLEMENTATION
  10. FISH OIL [Concomitant]
     Indication: BLOOD CHOLESTEROL INCREASED

REACTIONS (7)
  - Pain [Unknown]
  - Feeling abnormal [Unknown]
  - Pain [Unknown]
  - Influenza [Unknown]
  - Myalgia [Unknown]
  - Blood cholesterol increased [Unknown]
  - Blood triglycerides increased [Unknown]
